FAERS Safety Report 8184298-2 (Version None)
Quarter: 2012Q1

REPORT INFORMATION
  Report Type: 
  Country: None (occurrence: None)
  Receive Date: 20120301
  Receipt Date: 20120214
  Transmission Date: 20120608
  Serious: Yes (Hospitalization, Other)
  Sender: FDA-Public Use
  Company Number: 20120101

PATIENT
  Age: 82 Year
  Sex: Female

DRUGS (2)
  1. DOBUTAMINE HCL [Concomitant]
  2. ATROPINE SULFATE [Suspect]
     Indication: STRESS ECHOCARDIOGRAM
     Dosage: 2 MG IN 0.25 MG  ALIQUOTS

REACTIONS (1)
  - ANTICHOLINERGIC SYNDROME [None]
